FAERS Safety Report 13094173 (Version 1)
Quarter: 2017Q1

REPORT INFORMATION
  Report Type: Other
  Country: FR (occurrence: FR)
  Receive Date: 20170106
  Receipt Date: 20170106
  Transmission Date: 20170428
  Serious: Yes (Death, Hospitalization)
  Sender: FDA-Public Use
  Company Number: FR-ASTELLAS-2017US000423

PATIENT
  Age: 71 Year
  Sex: Female

DRUGS (14)
  1. ATORVASTATIN [Suspect]
     Active Substance: ATORVASTATIN
     Indication: HYPERCHOLESTEROLAEMIA
     Route: 048
     Dates: end: 201612
  2. CATAPRESSAN                        /00171101/ [Suspect]
     Active Substance: CLONIDINE
     Indication: HYPERTENSION
     Dosage: 0.15 MG, 1X/DAY
     Route: 048
     Dates: end: 201612
  3. ACEBUTOLOL HCL [Suspect]
     Active Substance: ACEBUTOLOL
     Indication: HYPERTENSION
     Route: 048
     Dates: end: 201612
  4. DOLIPRANE [Suspect]
     Active Substance: ACETAMINOPHEN
     Indication: PAIN
     Dosage: UNK, UNKNOWN FREQ.
     Route: 048
     Dates: end: 201612
  5. APRANAX                            /00256201/ [Suspect]
     Active Substance: NAPROXEN
     Indication: PRODUCT USED FOR UNKNOWN INDICATION
     Dosage: 550 MG, 1X/DAY
     Route: 048
     Dates: end: 201612
  6. BROMAZEPAM [Suspect]
     Active Substance: BROMAZEPAM
     Indication: ANXIETY
     Dosage: 0.5 DF, ONCE DAILY
     Route: 048
     Dates: end: 201612
  7. VESICARE [Suspect]
     Active Substance: SOLIFENACIN SUCCINATE
     Indication: PRODUCT USED FOR UNKNOWN INDICATION
     Route: 048
     Dates: end: 201612
  8. VENLAFAXINE HCL [Suspect]
     Active Substance: VENLAFAXINE HYDROCHLORIDE
     Indication: PRODUCT USED FOR UNKNOWN INDICATION
     Route: 048
     Dates: end: 201612
  9. XARELTO [Suspect]
     Active Substance: RIVAROXABAN
     Indication: ATRIAL FIBRILLATION
     Route: 048
     Dates: end: 201612
  10. BI TILDIEM [Suspect]
     Active Substance: DILTIAZEM HYDROCHLORIDE
     Indication: PRODUCT USED FOR UNKNOWN INDICATION
     Route: 048
     Dates: end: 201612
  11. INEXIUM                            /01479302/ [Suspect]
     Active Substance: ESOMEPRAZOLE MAGNESIUM
     Indication: PRODUCT USED FOR UNKNOWN INDICATION
     Route: 048
     Dates: end: 201612
  12. BIPRETERAX                         /01421201/ [Suspect]
     Active Substance: INDAPAMIDE\PERINDOPRIL ERBUMINE
     Indication: HYPERTENSION
     Dosage: 1 DF, ONCE DAILY (10 MG/2.5 MG TABLET)
     Route: 048
     Dates: end: 201612
  13. METFORMIN HCL [Suspect]
     Active Substance: METFORMIN HYDROCHLORIDE
     Indication: TYPE 2 DIABETES MELLITUS
     Route: 048
     Dates: end: 201612
  14. LEVOTHYROX [Suspect]
     Active Substance: LEVOTHYROXINE
     Indication: HYPOTHYROIDISM
     Route: 048
     Dates: end: 201612

REACTIONS (1)
  - Cerebral haematoma [Fatal]

NARRATIVE: CASE EVENT DATE: 20161206
